FAERS Safety Report 10898605 (Version 1)
Quarter: 2015Q1

REPORT INFORMATION
  Report Type: Report from Study
  Country: US (occurrence: US)
  Receive Date: 20150309
  Receipt Date: 20150309
  Transmission Date: 20150721
  Serious: No
  Sender: FDA-Public Use
  Company Number: US-ABBVIE-14P-163-1242869-00

PATIENT
  Age: 36 Year
  Sex: Female

DRUGS (3)
  1. LUPRON DEPOT [Suspect]
     Active Substance: LEUPROLIDE ACETATE
     Indication: ENDOMETRIOSIS
     Dates: start: 20131009
  2. VITAMIN E [Concomitant]
     Active Substance: .ALPHA.-TOCOPHEROL
     Indication: PRODUCT USED FOR UNKNOWN INDICATION
  3. METFORMIN [Concomitant]
     Active Substance: METFORMIN HYDROCHLORIDE
     Indication: PRODUCT USED FOR UNKNOWN INDICATION

REACTIONS (23)
  - Muscle tightness [Unknown]
  - Arthralgia [Unknown]
  - Arthritis [Unknown]
  - Vitamin D decreased [Unknown]
  - Pain in extremity [Not Recovered/Not Resolved]
  - Drug effect decreased [Not Recovered/Not Resolved]
  - Amnesia [Unknown]
  - Endometriosis [Recovering/Resolving]
  - Dizziness [Unknown]
  - Myalgia [Unknown]
  - Alopecia [Unknown]
  - Musculoskeletal stiffness [Unknown]
  - Abdominal pain upper [Unknown]
  - Paraesthesia [Unknown]
  - Insomnia [Unknown]
  - Bone pain [Unknown]
  - Hair growth abnormal [Unknown]
  - Chills [Unknown]
  - Muscular weakness [Unknown]
  - Alopecia [Not Recovered/Not Resolved]
  - Dry mouth [Unknown]
  - Myalgia [Not Recovered/Not Resolved]
  - Exostosis [Recovering/Resolving]

NARRATIVE: CASE EVENT DATE: 20131010
